FAERS Safety Report 8972663 (Version 1)
Quarter: 2012Q4

REPORT INFORMATION
  Report Type: 
  Country: US (occurrence: US)
  Receive Date: 20121218
  Receipt Date: 20121218
  Transmission Date: 20130627
  Serious: Yes (Hospitalization)
  Sender: FDA-Public Use
  Company Number: US-MYLANLABS-2012S1025172

PATIENT
  Age: 42 Year
  Sex: Female

DRUGS (3)
  1. LITHIUM [Suspect]
     Indication: MAJOR DEPRESSION
     Dosage: 300mg per day
     Route: 065
  2. LITHIUM [Suspect]
     Indication: MAJOR DEPRESSION
     Dosage: 600mg per day
     Route: 065
  3. VENLAFAXINE [Suspect]
     Indication: MAJOR DEPRESSION
     Dosage: 225mg extended release
     Route: 065

REACTIONS (1)
  - Serotonin syndrome [Recovering/Resolving]
